FAERS Safety Report 10279479 (Version 4)
Quarter: 2015Q1

REPORT INFORMATION
  Report Type: Spontaneous
  Country: JP (occurrence: JP)
  Receive Date: 20140707
  Receipt Date: 20150316
  Transmission Date: 20150720
  Serious: Yes (Life-Threatening, Disabling, Other)
  Sender: FDA-Public Use
  Company Number: JP-ROCHE-1411663

PATIENT
  Age: 49 Year
  Sex: Female
  Weight: 37 kg

DRUGS (16)
  1. LASIX [Concomitant]
     Active Substance: FUROSEMIDE
     Indication: ASCITES
     Route: 048
     Dates: start: 20140507, end: 20140516
  2. CARBOPLATIN. [Suspect]
     Active Substance: CARBOPLATIN
     Indication: OVARIAN CANCER METASTATIC
     Dosage: 400 MG, 595 MG
     Route: 041
     Dates: start: 20140414
  3. PACLITAXEL. [Suspect]
     Active Substance: PACLITAXEL
     Indication: OVARIAN CANCER METASTATIC
     Dosage: 250MG ONCE/DAY OF 230MG ONCE/DAY
     Route: 041
     Dates: start: 20140414
  4. AVASTIN [Suspect]
     Active Substance: BEVACIZUMAB
     Indication: OVARIAN CANCER METASTATIC
     Route: 041
     Dates: start: 20140508, end: 20140508
  5. EMEND [Concomitant]
     Active Substance: APREPITANT
     Indication: PROPHYLAXIS
     Route: 048
     Dates: start: 20140414, end: 20140414
  6. EMEND [Concomitant]
     Active Substance: APREPITANT
     Indication: PROPHYLAXIS
     Route: 048
     Dates: start: 20140508, end: 20140508
  7. GASLON N [Concomitant]
     Indication: GASTRITIS
     Route: 048
     Dates: start: 20140424
  8. LOXOPROFEN [Concomitant]
     Active Substance: LOXOPROFEN
     Indication: PAIN
     Dosage: FOR TON
     Route: 048
     Dates: start: 20140408
  9. MAGLAX [Concomitant]
     Active Substance: MAGNESIUM OXIDE
     Indication: CONSTIPATION
     Route: 048
     Dates: start: 20140416
  10. TEPRENONE [Concomitant]
     Active Substance: TEPRENONE
     Dosage: FOR TON?LOXOPROFEN AND USING TOGETHER
     Route: 048
     Dates: start: 20140408
  11. TELEMIN-SOFT [Concomitant]
     Indication: CONSTIPATION
     Dosage: FOR TON
     Route: 054
     Dates: start: 20140416
  12. EMEND [Concomitant]
     Active Substance: APREPITANT
     Indication: PROPHYLAXIS
     Route: 048
     Dates: start: 20140509, end: 20140510
  13. EMEND [Concomitant]
     Active Substance: APREPITANT
     Indication: PROPHYLAXIS
     Route: 048
     Dates: start: 20140415, end: 20140416
  14. RESTAMIN (DIPHENHYDRAMINE HYDROCHLORIDE) [Concomitant]
     Active Substance: DIPHENHYDRAMINE HYDROCHLORIDE
     Indication: PROPHYLAXIS
     Route: 048
     Dates: start: 20140414, end: 20140414
  15. RESTAMIN (DIPHENHYDRAMINE HYDROCHLORIDE) [Concomitant]
     Active Substance: DIPHENHYDRAMINE HYDROCHLORIDE
     Indication: PROPHYLAXIS
     Route: 048
     Dates: start: 20140508, end: 20140508
  16. ALDACTONE [Concomitant]
     Active Substance: SPIRONOLACTONE
     Indication: ASCITES
     Route: 048
     Dates: start: 20140502, end: 20140516

REACTIONS (7)
  - Peritonitis [Not Recovered/Not Resolved]
  - White blood cell count decreased [Unknown]
  - Tumour rupture [Not Recovered/Not Resolved]
  - Platelet count decreased [Recovered/Resolved]
  - Anaemia [Recovered/Resolved]
  - Tumour fistulisation [Not Recovered/Not Resolved]
  - Neutrophil count decreased [Unknown]

NARRATIVE: CASE EVENT DATE: 20140521
